FAERS Safety Report 7596345-7 (Version None)
Quarter: 2011Q3

REPORT INFORMATION
  Report Type: 
  Country: None (occurrence: None)
  Receive Date: 20110707
  Receipt Date: 20110627
  Transmission Date: 20111222
  Serious: Yes (Hospitalization)
  Sender: FDA-Public Use
  Company Number: ES-ABBOTT-11P-144-0712672-00

PATIENT
  Sex: Female
  Weight: 56 kg

DRUGS (4)
  1. HUMIRA [Suspect]
     Indication: CROHN'S DISEASE
     Route: 058
     Dates: start: 20090706, end: 20090706
  2. PREDNISONE [Concomitant]
     Indication: CROHN'S DISEASE
     Dosage: HIGHEST DOSE 40 MG
  3. HUMIRA [Suspect]
     Route: 058
     Dates: start: 20090701, end: 20090701
  4. HUMIRA [Suspect]
     Route: 058
     Dates: end: 20110301

REACTIONS (1)
  - METASTASES TO BONE [None]
